FAERS Safety Report 4728999-4 (Version None)
Quarter: 2005Q3

REPORT INFORMATION
  Report Type: 
  Country: None (occurrence: None)
  Receive Date: 20050729
  Receipt Date: 20050105
  Transmission Date: 20060218
  Serious: No
  Sender: FDA-Public Use
  Company Number: US-GLAXOSMITHKLINE-A0539477A

PATIENT
  Age: 51 Year
  Sex: Female

DRUGS (5)
  1. IMITREX [Suspect]
     Indication: MIGRAINE
     Route: 048
     Dates: start: 20000101
  2. IMITREX [Suspect]
     Route: 058
  3. IMITREX [Suspect]
     Route: 045
  4. VITAMINS [Concomitant]
  5. MIGRAINE MEDICATION [Concomitant]

REACTIONS (1)
  - DRUG INEFFECTIVE [None]
